FAERS Safety Report 4580324-8 (Version None)
Quarter: 2005Q1

REPORT INFORMATION
  Report Type: 
  Country: None (occurrence: None)
  Receive Date: 20050214
  Receipt Date: 20031031
  Transmission Date: 20050727
  Serious: No
  Sender: FDA-Public Use
  Company Number: US-GLAXOSMITHKLINE-A0432395A

PATIENT
  Age: 17 Year
  Sex: Female
  Weight: 63.6 kg

DRUGS (2)
  1. LAMICTAL [Suspect]
     Indication: BIPOLAR DISORDER
     Dosage: 100MG PER DAY
     Route: 048
     Dates: start: 20030904
  2. SEROQUEL [Concomitant]
     Route: 048
     Dates: start: 20031002

REACTIONS (2)
  - EYE MOVEMENT DISORDER [None]
  - PHARYNX DISCOMFORT [None]
